FAERS Safety Report 21719675 (Version 1)
Quarter: 2022Q4

REPORT INFORMATION
  Report Type: Spontaneous
  Country: IN (occurrence: IN)
  Receive Date: 20221213
  Receipt Date: 20221213
  Transmission Date: 20230112
  Serious: Yes (Other)
  Sender: FDA-Public Use
  Company Number: IN-AMNEAL PHARMACEUTICALS-2022-AMRX-03837

PATIENT
  Sex: Male

DRUGS (1)
  1. SIROLIMUS [Suspect]
     Active Substance: SIROLIMUS
     Indication: Congenital hyperinsulinaemic hypoglycaemia
     Dosage: TABLET
     Route: 048

REACTIONS (3)
  - Acute respiratory distress syndrome [Unknown]
  - Shock [Unknown]
  - Pneumonia [Unknown]
